FAERS Safety Report 5038583-3 (Version None)
Quarter: 2006Q2

REPORT INFORMATION
  Report Type: 
  Country: None (occurrence: None)
  Receive Date: 20060629
  Receipt Date: 20060619
  Transmission Date: 20061013
  Serious: Yes (Hospitalization)
  Sender: FDA-Public Use
  Company Number: FR-BRISTOL-MYERS SQUIBB COMPANY-13416458

PATIENT
  Age: 70 Year
  Sex: Female

DRUGS (2)
  1. TAXOL [Suspect]
     Indication: ASCITES
     Route: 042
     Dates: start: 20060519, end: 20060519
  2. CARBOPLATIN [Concomitant]
     Indication: ASCITES

REACTIONS (4)
  - BLOOD PRESSURE INCREASED [None]
  - CYANOSIS [None]
  - DYSPNOEA [None]
  - MUSCULOSKELETAL CHEST PAIN [None]
